FAERS Safety Report 4851961-8 (Version None)
Quarter: 2005Q4

REPORT INFORMATION
  Report Type: 
  Country: None (occurrence: None)
  Receive Date: 20051212
  Receipt Date: 20051212
  Transmission Date: 20060501
  Serious: Yes (Hospitalization)
  Sender: FDA-Public Use
  Company Number: None

PATIENT
  Age: 12 Year
  Sex: Male
  Weight: 53 kg

DRUGS (1)
  1. LEVOTHYROXIN [Suspect]
     Indication: HYPOTHYROIDISM
     Dosage: 100 MCG DAILY
     Dates: start: 20050530

REACTIONS (3)
  - BLOOD THYROID STIMULATING HORMONE INCREASED [None]
  - LOSS OF CONSCIOUSNESS [None]
  - THYROXINE DECREASED [None]
